FAERS Safety Report 4524201-7 (Version None)
Quarter: 2004Q4

REPORT INFORMATION
  Report Type: 
  Country: None (occurrence: None)
  Receive Date: 20041209
  Receipt Date: 20041129
  Transmission Date: 20050328
  Serious: Yes (Hospitalization, Other)
  Sender: FDA-Public Use
  Company Number: 2004099922

PATIENT
  Age: 32 Year
  Sex: Female

DRUGS (4)
  1. ZYRTEC [Suspect]
     Indication: URTICARIA
     Dosage: 10 MG, ORAL
     Route: 048
     Dates: start: 20040918, end: 20040929
  2. OXATOMIDE [Suspect]
     Indication: ILL-DEFINED DISORDER
     Dosage: ORAL
     Route: 048
  3. AMPHOTERICIN B [Suspect]
     Indication: ILL-DEFINED DISORDER
  4. DIPYRIDAMOLE [Suspect]
     Indication: ILL-DEFINED DISORDER

REACTIONS (8)
  - ABDOMINAL DISCOMFORT [None]
  - ALANINE AMINOTRANSFERASE INCREASED [None]
  - ASPARTATE AMINOTRANSFERASE INCREASED [None]
  - BLOOD ALKALINE PHOSPHATASE INCREASED [None]
  - BLOOD LACTATE DEHYDROGENASE INCREASED [None]
  - DECREASED APPETITE [None]
  - GAMMA-GLUTAMYLTRANSFERASE INCREASED [None]
  - LIVER DISORDER [None]
